FAERS Safety Report 10116230 (Version 2)
Quarter: 2015Q1

REPORT INFORMATION
  Report Type: Other
  Country: US (occurrence: US)
  Receive Date: 20140426
  Receipt Date: 20150122
  Transmission Date: 20150720
  Serious: Yes (Hospitalization, Other)
  Sender: FDA-Public Use
  Company Number: US-GSKPPD-2014GSK016988

PATIENT
  Age: 57 Year
  Sex: Female

DRUGS (7)
  1. AVANDIA [Suspect]
     Active Substance: ROSIGLITAZONE MALEATE
     Indication: DIABETES MELLITUS
     Dosage: DATES OF AVANDIA USE COULD NOT BE CONFIRMED IN RECORDS REVIEWED
     Route: 048
  2. AMLODIPINE BESYLATE. [Concomitant]
     Active Substance: AMLODIPINE BESYLATE
     Dates: end: 20080624
  3. CARVEDILOL. [Concomitant]
     Active Substance: CARVEDILOL
  4. ASPIRIN. [Concomitant]
     Active Substance: ASPIRIN
  5. HYDROCHLOROTHIAZIDE. [Concomitant]
     Active Substance: HYDROCHLOROTHIAZIDE
     Dates: end: 20080624
  6. TRIAMTERENE. [Concomitant]
     Active Substance: TRIAMTERENE
     Dates: end: 20080624
  7. LISINOPRIL. [Concomitant]
     Active Substance: LISINOPRIL
     Dates: start: 200806

REACTIONS (3)
  - Cardiac failure congestive [Recovered/Resolved]
  - Myocardial ischaemia [Unknown]
  - Cardiomyopathy [Recovered/Resolved]

NARRATIVE: CASE EVENT DATE: 20080616
